FAERS Safety Report 15849073 (Version 1)
Quarter: 2019Q1

REPORT INFORMATION
  Report Type: Other
  Country: GB (occurrence: GB)
  Receive Date: 20190121
  Receipt Date: 20190121
  Transmission Date: 20190417
  Serious: Yes (Hospitalization)
  Sender: FDA-Public Use
  Company Number: GB-HERITAGE PHARMACEUTICALS-2018HTG00367

PATIENT
  Age: 51 Year
  Sex: Female
  Weight: 95.25 kg

DRUGS (14)
  1. METFORMIN [Concomitant]
     Active Substance: METFORMIN HYDROCHLORIDE
  2. ACYCLOVIR. [Suspect]
     Active Substance: ACYCLOVIR
     Indication: HERPES ZOSTER
     Dosage: UNK
     Route: 048
     Dates: start: 20170726, end: 20170802
  3. THIAMINE. [Concomitant]
     Active Substance: THIAMINE
  4. ZOPICLONE [Concomitant]
     Active Substance: ZOPICLONE
  5. TOPIRAMATE. [Concomitant]
     Active Substance: TOPIRAMATE
  6. THYROXINE [Concomitant]
     Active Substance: LEVOTHYROXINE
  7. TRAMADOL. [Concomitant]
     Active Substance: TRAMADOL
  8. SIMVASTATIN. [Concomitant]
     Active Substance: SIMVASTATIN
  9. METHOTREXATE. [Concomitant]
     Active Substance: METHOTREXATE
  10. COCODAMOL [Concomitant]
     Active Substance: ACETAMINOPHEN\CODEINE PHOSPHATE
  11. BISOPROLOL [Concomitant]
     Active Substance: BISOPROLOL
  12. PREGABALIN. [Concomitant]
     Active Substance: PREGABALIN
  13. OMEPRAZOLE. [Concomitant]
     Active Substance: OMEPRAZOLE
  14. ADCAL-D3 [Concomitant]
     Active Substance: CALCIUM CARBONATE\CHOLECALCIFEROL

REACTIONS (2)
  - Eye swelling [Unknown]
  - Swelling face [Recovered/Resolved]

NARRATIVE: CASE EVENT DATE: 20170731
